FAERS Safety Report 6064519-2 (Version None)
Quarter: 2009Q1

REPORT INFORMATION
  Report Type: 
  Country: None (occurrence: None)
  Receive Date: 20090204
  Receipt Date: 20090130
  Transmission Date: 20090719
  Serious: Yes (Hospitalization)
  Sender: FDA-Public Use
  Company Number: A0745825A

PATIENT
  Age: 73 Year
  Sex: Female
  Weight: 72.3 kg

DRUGS (17)
  1. AVANDIA [Suspect]
     Dosage: 2MG TWICE PER DAY
     Route: 048
     Dates: start: 20020101, end: 20070401
  2. METFORMIN [Concomitant]
  3. GLYBURIDE [Concomitant]
  4. INDAPAMIDE [Concomitant]
  5. AMITRIPTYLINE HCL [Concomitant]
  6. LISINOPRIL [Concomitant]
  7. SULFAMETHOXAZOLE AND TRIMETHOPRIM [Concomitant]
  8. ZITHROMAX [Concomitant]
  9. LOVASTATIN [Concomitant]
  10. FEXOFENADINE [Concomitant]
  11. NASACORT [Concomitant]
  12. AMOXICILLIN [Concomitant]
  13. METHOCARBAMOL [Concomitant]
  14. COUGH MEDICATION [Concomitant]
  15. HYDROCODONE [Concomitant]
  16. ZESTRIL [Concomitant]
  17. PREMARIN [Concomitant]

REACTIONS (1)
  - MYOCARDIAL INFARCTION [None]
